FAERS Safety Report 6616151-7 (Version None)
Quarter: 2010Q1

REPORT INFORMATION
  Report Type: 
  Country: None (occurrence: None)
  Receive Date: 20100305
  Receipt Date: 20100223
  Transmission Date: 20100710
  Serious: Yes (Other)
  Sender: FDA-Public Use
  Company Number: US-PFIZER INC-2003120821

PATIENT
  Sex: Male
  Weight: 77.098 kg

DRUGS (5)
  1. VIAGRA [Suspect]
     Indication: ERECTILE DYSFUNCTION
     Dosage: 25 MG, UNK
     Route: 048
  2. VIAGRA [Suspect]
     Dosage: 100 MG, AS NEEDED
  3. LEVITRA [Suspect]
  4. CIALIS [Concomitant]
     Indication: ERECTILE DYSFUNCTION
     Dosage: UNK
  5. TERAZOSIN [Concomitant]
     Indication: PROSTATIC DISORDER
     Dosage: 10 MG, 1X/DAY
     Dates: start: 19900101

REACTIONS (9)
  - CONJUNCTIVAL DISCOLOURATION [None]
  - CYANOPSIA [None]
  - DIABETES MELLITUS [None]
  - DRUG INEFFECTIVE [None]
  - FEELING HOT [None]
  - FLUSHING [None]
  - HEADACHE [None]
  - THERAPEUTIC RESPONSE DECREASED [None]
  - VISION BLURRED [None]
